FAERS Safety Report 11746608 (Version 8)
Quarter: 2021Q2

REPORT INFORMATION
  Report Type: Other
  Country: US (occurrence: US)
  Receive Date: 20151117
  Receipt Date: 20210421
  Transmission Date: 20210716
  Serious: Yes (Other)
  Sender: FDA-Public Use
  Company Number: US-ROCHE-1488757

PATIENT

DRUGS (2)
  1. IBRUTINIB [Suspect]
     Active Substance: IBRUTINIB
     Indication: MANTLE CELL LYMPHOMA
     Route: 048
  2. RITUXIMAB. [Suspect]
     Active Substance: RITUXIMAB
     Indication: MANTLE CELL LYMPHOMA
     Dosage: RITUXIMAB WAS DOSED AT 375 MG/M2 INTRAVENOUS( IV) WEEKLY  X 4 DURING CYCLE 1 (CYCLE = 28 DAYS), THEN
     Route: 042

REACTIONS (48)
  - Leukocytosis [Unknown]
  - Myalgia [Unknown]
  - Headache [Unknown]
  - Hyperkalaemia [Unknown]
  - Pain [Unknown]
  - Epistaxis [Unknown]
  - Pneumonitis [Unknown]
  - Cardiomegaly [Unknown]
  - Renal disorder [Unknown]
  - Genitourinary tract infection [Unknown]
  - Urinary tract infection [Unknown]
  - Acute kidney injury [Unknown]
  - Aspiration [Unknown]
  - Oesophageal carcinoma [Unknown]
  - Diarrhoea [Unknown]
  - Alanine aminotransferase increased [Unknown]
  - Atrial fibrillation [Unknown]
  - Kidney infection [Unknown]
  - Syncope [Unknown]
  - Anaemia [Unknown]
  - Gastrointestinal infection [Unknown]
  - Soft tissue infection [Unknown]
  - Dyspnoea [Unknown]
  - Fracture [Unknown]
  - Pneumonia [Unknown]
  - Pleural effusion [Unknown]
  - Thrombocytopenia [Unknown]
  - Hepatic infection [Unknown]
  - Fatigue [Unknown]
  - Hypertension [Unknown]
  - Pain in extremity [Unknown]
  - Urinary tract disorder [Unknown]
  - Penile pain [Unknown]
  - Skin infection [Unknown]
  - Wound infection [Unknown]
  - Lymphocytosis [Unknown]
  - Myocardial infarction [Unknown]
  - Ascites [Unknown]
  - Rash [Unknown]
  - Enterocolitis [Unknown]
  - Neutropenia [Unknown]
  - Upper respiratory tract infection [Unknown]
  - Aspartate aminotransferase increased [Unknown]
  - Abdominal pain [Unknown]
  - Gingivitis [Unknown]
  - Breast haemorrhage [Unknown]
  - Arthralgia [Unknown]
  - Sinusitis [Unknown]
